FAERS Safety Report 7852496-0 (Version None)
Quarter: 2011Q4

REPORT INFORMATION
  Report Type: 
  Country: None (occurrence: None)
  Receive Date: 20111026
  Receipt Date: 20111017
  Transmission Date: 20120403
  Serious: Yes (Other)
  Sender: FDA-Public Use
  Company Number: US-ASTRAZENECA-2011SE58642

PATIENT
  Age: 61 Year
  Sex: Female
  Weight: 29.9 kg

DRUGS (9)
  1. NORVASC [Concomitant]
  2. SEROQUEL [Suspect]
     Indication: SLEEP DISORDER
     Dosage: ONCE
     Route: 048
  3. LEVOXYL [Concomitant]
  4. SEROQUEL [Suspect]
     Route: 048
     Dates: start: 20071107
  5. ATENOLOL [Concomitant]
  6. POTASSIUM [Concomitant]
     Dosage: ONCE A MONTH
  7. SPIRONOLACTONE [Concomitant]
  8. LORAZEPAM [Concomitant]
  9. MARTEZATINE [Concomitant]

REACTIONS (14)
  - ABASIA [None]
  - HERNIA [None]
  - FEELING ABNORMAL [None]
  - DIZZINESS [None]
  - RENAL FAILURE CHRONIC [None]
  - MULTIPLE SCLEROSIS [None]
  - NAUSEA [None]
  - WEIGHT DECREASED [None]
  - ARTHRITIS [None]
  - SOMNOLENCE [None]
  - OFF LABEL USE [None]
  - SUICIDAL IDEATION [None]
  - INSOMNIA [None]
  - DRUG INTOLERANCE [None]
